FAERS Safety Report 10215352 (Version 1)
Quarter: 2014Q2

REPORT INFORMATION
  Report Type: Spontaneous
  Country: US (occurrence: US)
  Receive Date: 20140604
  Receipt Date: 20140604
  Transmission Date: 20141212
  Serious: Yes (Death)
  Sender: FDA-Public Use
  Company Number: US-AMGEN INC.-USASP2014041157

PATIENT
  Age: 49 Year
  Sex: Female

DRUGS (2)
  1. EPOGEN [Suspect]
     Indication: RENAL FAILURE CHRONIC
     Dosage: UNK
     Route: 065
  2. SENSIPAR [Suspect]
     Indication: HYPERPARATHYROIDISM SECONDARY
     Dosage: UNK
     Route: 065

REACTIONS (1)
  - Death [Fatal]
